FAERS Safety Report 8164180-7 (Version None)
Quarter: 2012Q1

REPORT INFORMATION
  Report Type: 
  Country: None (occurrence: None)
  Receive Date: 20120224
  Receipt Date: 20120221
  Transmission Date: 20120608
  Serious: Yes (Hospitalization, Other)
  Sender: FDA-Public Use
  Company Number: IT-ABBOTT-12P-083-0906572-00

PATIENT
  Sex: Female

DRUGS (4)
  1. IBUPROFEN [Suspect]
  2. CLARITHROMYCIN [Suspect]
  3. CLARITHROMYCIN [Suspect]
     Indication: PHARYNGITIS
     Dosage: 125MG/5 ML
     Route: 048
     Dates: start: 20120206, end: 20120210
  4. IBUPROFEN [Suspect]
     Indication: TRACHEITIS
     Route: 048
     Dates: start: 20120206, end: 20120210

REACTIONS (3)
  - DEHYDRATION [None]
  - VOMITING [None]
  - DIARRHOEA [None]
